FAERS Safety Report 18393924 (Version 1)
Quarter: 2020Q4

REPORT INFORMATION
  Report Type: Spontaneous
  Country: JP (occurrence: JP)
  Receive Date: 20201016
  Receipt Date: 20201016
  Transmission Date: 20210114
  Serious: Yes (Other)
  Sender: FDA-Public Use
  Company Number: JP-GLAXOSMITHKLINE-JP2020JPN203157

PATIENT
  Age: 70 Year
  Sex: Female

DRUGS (3)
  1. IPRAGLIFLOZIN L-PROLINE [Suspect]
     Active Substance: IPRAGLIFLOZIN L-PROLINE
     Indication: DIABETES MELLITUS INADEQUATE CONTROL
  2. VALACICLOVIR [Suspect]
     Active Substance: VALACYCLOVIR HYDROCHLORIDE
     Dosage: UNK
     Route: 048
  3. IPRAGLIFLOZIN L-PROLINE [Suspect]
     Active Substance: IPRAGLIFLOZIN L-PROLINE
     Indication: LATENT AUTOIMMUNE DIABETES IN ADULTS
     Dosage: UNK
     Route: 065

REACTIONS (5)
  - Weight increased [Recovered/Resolved]
  - Diabetes mellitus inadequate control [Unknown]
  - Diabetic ketoacidosis [Unknown]
  - Nephropathy toxic [Unknown]
  - Weight decreased [Unknown]
